FAERS Safety Report 4946243-X (Version None)
Quarter: 2006Q1

REPORT INFORMATION
  Report Type: 
  Country: None (occurrence: None)
  Receive Date: 20060317
  Receipt Date: 20060307
  Transmission Date: 20060701
  Serious: Yes (Hospitalization)
  Sender: FDA-Public Use
  Company Number: US-SANOFI-SYNTHELABO-A03200601247

PATIENT
  Sex: Male
  Weight: 85.26 kg

DRUGS (5)
  1. PLAVIX [Suspect]
     Indication: DRUG USE FOR UNKNOWN INDICATION
     Dosage: UNK
     Route: 048
  2. ERBITUX [Suspect]
     Dosage: UNK
     Route: 065
  3. ACIPHEX [Concomitant]
     Dosage: UNK
     Route: 065
  4. NEURONTIN [Concomitant]
     Dosage: UNK
     Route: 065
  5. FENTANYL [Concomitant]
     Dosage: UNK
     Route: 065

REACTIONS (3)
  - DERMATITIS ACNEIFORM [None]
  - PYREXIA [None]
  - SKIN HAEMORRHAGE [None]
